FAERS Safety Report 9070142 (Version 1)
Quarter: 2013Q1

REPORT INFORMATION
  Report Type: Spontaneous
  Country: US (occurrence: US)
  Receive Date: 20130129
  Receipt Date: 20130129
  Transmission Date: 20140127
  Serious: No
  Sender: FDA-Public Use
  Company Number: US-ABBOTT-04P-163-0275474-00

PATIENT
  Age: 60 None
  Sex: Male

DRUGS (16)
  1. HUMIRA 40 MG/ 0.8 ML PRE-FILLED SYRINGE [Suspect]
     Indication: RHEUMATOID ARTHRITIS
     Route: 058
     Dates: start: 200405
  2. HUMIRA 40 MG/ 0.8 ML PRE-FILLED SYRINGE [Suspect]
  3. HUMIRA 40 MG/ 0.8 ML PRE-FILLED SYRINGE [Suspect]
  4. HUMALOG [Concomitant]
     Indication: DIABETES MELLITUS
  5. CLONADINE [Concomitant]
     Indication: BLOOD PRESSURE INCREASED
  6. COZAAR [Concomitant]
     Indication: BLOOD PRESSURE INCREASED
     Route: 048
  7. SYNTHROID [Concomitant]
     Indication: HYPOTHYROIDISM
     Route: 048
  8. POTASSIUM [Concomitant]
     Indication: PRODUCT USED FOR UNKNOWN INDICATION
  9. PAXIL [Concomitant]
     Indication: PRODUCT USED FOR UNKNOWN INDICATION
  10. TRAZODONE [Concomitant]
     Indication: PRODUCT USED FOR UNKNOWN INDICATION
  11. XANAX [Concomitant]
     Indication: PRODUCT USED FOR UNKNOWN INDICATION
  12. ZYRTEC [Concomitant]
     Indication: PRODUCT USED FOR UNKNOWN INDICATION
     Route: 048
  13. NEURONTIN [Concomitant]
     Indication: PAIN
     Route: 048
  14. OXYGEN [Concomitant]
     Indication: PRODUCT USED FOR UNKNOWN INDICATION
  15. ENBREL [Concomitant]
     Indication: PRODUCT USED FOR UNKNOWN INDICATION
     Dates: start: 200910, end: 200912
  16. PREDNISONE [Concomitant]
     Indication: PRODUCT USED FOR UNKNOWN INDICATION

REACTIONS (13)
  - Pharyngeal oedema [Recovered/Resolved]
  - Pain [Not Recovered/Not Resolved]
  - Muscular weakness [Not Recovered/Not Resolved]
  - Inflammatory pain [Recovering/Resolving]
  - Rheumatoid arthritis [Unknown]
  - Sinusitis [Recovering/Resolving]
  - Upper respiratory tract infection [Recovering/Resolving]
  - Cough [Unknown]
  - Dizziness [Unknown]
  - Fall [Unknown]
  - Skin wound [Recovering/Resolving]
  - Arthritis [Unknown]
  - Nasal discharge discolouration [Unknown]
